FAERS Safety Report 10365808 (Version 1)
Quarter: 2014Q1

REPORT INFORMATION
  Report Type: Spontaneous
  Country: US (occurrence: None)
  Receive Date: 20140306
  Receipt Date: 20140306
  Transmission Date: 20141002
  Serious: Yes (Life-Threatening, Hospitalization, Other)
  Sender: FDA-Public Use
  Company Number: 163-21880-13022425

PATIENT
  Age: 70 Year
  Sex: Male

DRUGS (8)
  1. REVLIMID (LENALIDOMIDE) (15 MILLIGRAM, CAPSULES) [Suspect]
     Indication: PLASMA CELL MYELOMA
     Dosage: 15 MG, 21 IN 28 D
     Route: 048
     Dates: start: 20120523, end: 20130206
  2. SIMVASTATIN [Concomitant]
  3. SIMVASTATIN [Concomitant]
  4. NIFEDIAC  ER (NIFEDIPINE) [Concomitant]
  5. TERAZOSIN [Concomitant]
  6. IBUPROFEN [Concomitant]
     Route: 048
     Dates: start: 20120523, end: 20130206
  7. HYDROCHLOROT [Concomitant]
  8. DEXAMETHASONE [Concomitant]

REACTIONS (2)
  - Bronchitis [None]
  - Pneumonia [None]
